FAERS Safety Report 6129372-7 (Version None)
Quarter: 2009Q1

REPORT INFORMATION
  Report Type: 
  Country: None (occurrence: None)
  Receive Date: 20090324
  Receipt Date: 20090319
  Transmission Date: 20090719
  Serious: Yes (Life-Threatening, Hospitalization)
  Sender: FDA-Public Use
  Company Number: PHHY2009CA10524

PATIENT

DRUGS (1)
  1. EXJADE [Suspect]

REACTIONS (3)
  - APPARENT DEATH [None]
  - RASH [None]
  - SEPSIS [None]
